FAERS Safety Report 8593620-4 (Version None)
Quarter: 2012Q3

REPORT INFORMATION
  Report Type: 
  Country: None (occurrence: None)
  Receive Date: 20120814
  Receipt Date: 20120731
  Transmission Date: 20120928
  Serious: No
  Sender: FDA-Public Use
  Company Number: US-ASTRAZENECA-2012SE54445

PATIENT
  Age: 54 Year
  Sex: Female

DRUGS (1)
  1. SYMBICORT [Suspect]
     Route: 055

REACTIONS (8)
  - HYPERTENSION [None]
  - BACK PAIN [None]
  - ASTHMA [None]
  - ABDOMINAL DISCOMFORT [None]
  - RHEUMATOID ARTHRITIS [None]
  - MUSCULOSKELETAL PAIN [None]
  - PAIN IN EXTREMITY [None]
  - NECK PAIN [None]
